FAERS Safety Report 7084900-2 (Version None)
Quarter: 2010Q4

REPORT INFORMATION
  Report Type: 
  Country: None (occurrence: None)
  Receive Date: 20101105
  Receipt Date: 20101026
  Transmission Date: 20110411
  Serious: Yes (Other)
  Sender: FDA-Public Use
  Company Number: US-TEVA-252039USA

PATIENT
  Sex: Female

DRUGS (3)
  1. ALENDRONAT SODIUM, TABLETS, 5MG, 10MG, 40MG, 35MG, 70MG [Suspect]
     Dates: start: 20080201, end: 20081001
  2. ALENDRONATE SODIUM [Suspect]
     Dates: start: 20030701, end: 20070101
  3. FOSAMAX PLUS D [Suspect]
     Dates: start: 20030701, end: 20070101

REACTIONS (10)
  - BONE DISORDER [None]
  - EMOTIONAL DISTRESS [None]
  - FEMUR FRACTURE [None]
  - LOW TURNOVER OSTEOPATHY [None]
  - MENTAL DISORDER [None]
  - MULTIPLE INJURIES [None]
  - OSTEOGENESIS IMPERFECTA [None]
  - PAIN [None]
  - STRESS FRACTURE [None]
  - UNEVALUABLE EVENT [None]
